FAERS Safety Report 6706359-4 (Version None)
Quarter: 2010Q2

REPORT INFORMATION
  Report Type: 
  Country: None (occurrence: None)
  Receive Date: 20100503
  Receipt Date: 20100421
  Transmission Date: 20101027
  Serious: Yes (Hospitalization)
  Sender: FDA-Public Use
  Company Number: ES-ELI_LILLY_AND_COMPANY-ES201004005895

PATIENT
  Sex: Female

DRUGS (17)
  1. FORTEO [Suspect]
     Indication: OSTEOPOROSIS
     Dosage: 20 UG, DAILY (1/D)
     Route: 058
     Dates: start: 20080414
  2. INSULINA                           /01223201/ [Concomitant]
     Indication: DIABETES MELLITUS
     Dosage: UNK, 2/D
     Route: 058
  3. OMEPRAZOLE [Concomitant]
     Dosage: UNK, DAILY (1/D)
     Route: 048
  4. METFORMIN HCL [Concomitant]
     Indication: DIABETES MELLITUS
     Dosage: UNK, 3/D
     Route: 048
  5. RAMIPRIL [Concomitant]
     Dosage: UNK, DAILY (1/D)
     Route: 048
  6. NOLOTIL [Concomitant]
     Indication: PAIN
     Dosage: UNK, AS NEEDED
     Route: 048
  7. ASTUDAL [Concomitant]
     Dosage: UNK, DAILY (1/D)
     Route: 048
  8. NOVONORM [Concomitant]
     Dosage: UNK, DAILY (1/D)
     Route: 048
  9. TEPAZEPAN [Concomitant]
     Dosage: UNK, DAILY (1/D)
     Route: 048
  10. SEROXAT [Concomitant]
     Dosage: UNK, DAILY (1/D)
     Route: 048
  11. DUPHALAC [Concomitant]
     Indication: GASTROINTESTINAL MOTILITY DISORDER
     Dosage: UNK, UNKNOWN
     Route: 048
  12. LORAZEPAM [Concomitant]
     Dosage: UNK, UNKNOWN
     Route: 065
  13. EFFERALGAN /00020001/ [Concomitant]
     Dosage: UNK, UNKNOWN
     Route: 048
  14. ANTAROL [Concomitant]
     Dosage: UNK, UNKNOWN
     Route: 048
  15. ALMAX [Concomitant]
     Dosage: UNK, UNKNOWN
     Route: 048
  16. SIMVASTATIN [Concomitant]
     Dosage: UNK, 2/D
     Route: 048
  17. VALIUM [Concomitant]
     Dosage: UNK, AS NEEDED
     Route: 048

REACTIONS (1)
  - BONE DEVELOPMENT ABNORMAL [None]
